FAERS Safety Report 13789256 (Version 2)
Quarter: 2017Q3

REPORT INFORMATION
  Report Type: Spontaneous
  Country: US (occurrence: US)
  Receive Date: 20170725
  Receipt Date: 20170803
  Transmission Date: 20171127
  Serious: Yes (Death, Hospitalization)
  Sender: FDA-Public Use
  Company Number: US-TORRENT-00003216

PATIENT
  Age: 53 Year
  Sex: Male

DRUGS (1)
  1. AMLODIPINE [Suspect]
     Active Substance: AMLODIPINE BESYLATE

REACTIONS (8)
  - Hypotension [Unknown]
  - Overdose [Fatal]
  - Brain herniation [Unknown]
  - Cardiac arrest [Unknown]
  - Brain death [Fatal]
  - Completed suicide [Fatal]
  - Pulseless electrical activity [Unknown]
  - Brain injury [Unknown]
